FAERS Safety Report 23101637 (Version 1)
Quarter: 2023Q4

REPORT INFORMATION
  Report Type: Report from Study
  Country: US (occurrence: US)
  Receive Date: 20231025
  Receipt Date: 20231025
  Transmission Date: 20240110
  Serious: Yes (Death, Other)
  Sender: FDA-Public Use
  Company Number: US-ACADIA PHARMACEUTICALS INC.-ACA-2023-PIM-004719

PATIENT
  Age: 76 Year
  Sex: Male

DRUGS (13)
  1. NUPLAZID [Suspect]
     Active Substance: PIMAVANSERIN TARTRATE
     Indication: Parkinson^s disease psychosis
     Dosage: 34 MILLIGRAM, QD
     Route: 048
     Dates: start: 20230831, end: 20231002
  2. NUPLAZID [Suspect]
     Active Substance: PIMAVANSERIN TARTRATE
     Indication: Hallucination
  3. NUPLAZID [Suspect]
     Active Substance: PIMAVANSERIN TARTRATE
     Indication: Delusion
  4. NUPLAZID [Suspect]
     Active Substance: PIMAVANSERIN TARTRATE
     Indication: Parkinson^s disease
  5. TAMSULOSIN [Concomitant]
     Active Substance: TAMSULOSIN
  6. ATIVAN [Concomitant]
     Active Substance: LORAZEPAM
  7. ISOSORBIDE MONONITRATE [Concomitant]
     Active Substance: ISOSORBIDE MONONITRATE
  8. METOPROLOL [Concomitant]
     Active Substance: METOPROLOL
  9. FUROSEMIDE [Concomitant]
     Active Substance: FUROSEMIDE
  10. LOVASTATIN [Concomitant]
     Active Substance: LOVASTATIN
  11. SINEMET [Concomitant]
     Active Substance: CARBIDOPA\LEVODOPA
  12. MULTAQ [Concomitant]
     Active Substance: DRONEDARONE
  13. CELEBREX [Concomitant]
     Active Substance: CELECOXIB

REACTIONS (1)
  - Death [Fatal]

NARRATIVE: CASE EVENT DATE: 20231002
